FAERS Safety Report 11574060 (Version 8)
Quarter: 2016Q4

REPORT INFORMATION
  Report Type: Report from Study
  Country: AU (occurrence: AU)
  Receive Date: 20150930
  Receipt Date: 20161209
  Transmission Date: 20170206
  Serious: Yes (Other)
  Sender: FDA-Public Use
  Company Number: AU-ROCHE-1538572

PATIENT
  Age: 43 Year
  Sex: Female
  Weight: 54 kg

DRUGS (5)
  1. ACTEMRA [Suspect]
     Active Substance: TOCILIZUMAB
     Indication: RHEUMATOID ARTHRITIS
     Route: 042
     Dates: start: 20131113
  2. CELEBREX [Concomitant]
     Active Substance: CELECOXIB
  3. ACTEMRA [Suspect]
     Active Substance: TOCILIZUMAB
     Dosage: 240 MG AT 4MG/KG?REDUCED DOSE.
     Route: 042
     Dates: start: 20150331
  4. PARIET [Concomitant]
     Active Substance: RABEPRAZOLE SODIUM
  5. ACTEMRA [Suspect]
     Active Substance: TOCILIZUMAB
     Route: 042
     Dates: start: 20161011

REACTIONS (7)
  - Urinary tract infection [Recovering/Resolving]
  - Oral pain [Not Recovered/Not Resolved]
  - Jaw cyst [Recovered/Resolved]
  - Arthralgia [Not Recovered/Not Resolved]
  - Viral infection [Recovered/Resolved]
  - Neutropenia [Recovered/Resolved]
  - Ameloblastoma [Unknown]

NARRATIVE: CASE EVENT DATE: 20150209
